FAERS Safety Report 8794210 (Version 1)
Quarter: 2012Q4

REPORT INFORMATION
  Report Type: 
  Country: US (occurrence: US)
  Receive Date: 20120917
  Receipt Date: 20120917
  Transmission Date: 20130627
  Serious: Yes (Hospitalization, Other)
  Sender: FDA-Public Use
  Company Number: US-ELI_LILLY_AND_COMPANY-US201202001443

PATIENT
  Sex: Female

DRUGS (6)
  1. FORTEO [Suspect]
     Indication: OSTEOPOROSIS
     Dosage: 20 ug, qd
     Dates: start: 2008, end: 2010
  2. FORTEO [Suspect]
     Dosage: 20 ug, qd
     Dates: start: 201107
  3. FORTEO [Suspect]
     Dosage: 20 u, qd
  4. OMEPRAZOLE [Concomitant]
     Dosage: UNK
  5. AMBIEN [Concomitant]
     Dosage: UNK
  6. SIMVASTATIN [Concomitant]
     Dosage: UNK

REACTIONS (5)
  - Hip arthroplasty [Unknown]
  - Joint dislocation [Recovering/Resolving]
  - Joint dislocation [Not Recovered/Not Resolved]
  - Bone density decreased [Unknown]
  - Off label use [Unknown]
